FAERS Safety Report 4305260-3 (Version None)
Quarter: 2004Q1

REPORT INFORMATION
  Report Type: 
  Country: None (occurrence: None)
  Receive Date: 20040226
  Receipt Date: 20040128
  Transmission Date: 20041129
  Serious: No
  Sender: FDA-Public Use
  Company Number: US-BRISTOL-MYERS SQUIBB COMPANY-12490363

PATIENT
  Age: 6 Day
  Sex: Female

DRUGS (1)
  1. DEFINITY [Suspect]
     Dosage: MIX WITH 100 CC OF NORMAL SALINE

REACTIONS (3)
  - ARTHRALGIA [None]
  - BACK PAIN [None]
  - PAIN IN EXTREMITY [None]
